FAERS Safety Report 17107614 (Version 2)
Quarter: 2020Q1

REPORT INFORMATION
  Report Type: Report from Study
  Country: GB (occurrence: GB)
  Receive Date: 20191203
  Receipt Date: 20200116
  Transmission Date: 20200409
  Serious: Yes (Other)
  Sender: FDA-Public Use
  Company Number: GB-JNJFOC-20191141828

PATIENT
  Sex: Male

DRUGS (1)
  1. STELARA [Suspect]
     Active Substance: USTEKINUMAB
     Indication: CROHN^S DISEASE
     Route: 058
     Dates: start: 20181025

REACTIONS (4)
  - Intestinal stenosis [Unknown]
  - Drug ineffective [Unknown]
  - Crohn^s disease [Unknown]
  - Gastrointestinal fistula [Unknown]
